FAERS Safety Report 14794350 (Version 1)
Quarter: 2018Q2

REPORT INFORMATION
  Report Type: Spontaneous
  Country: FR (occurrence: FR)
  Receive Date: 20180423
  Receipt Date: 20180423
  Transmission Date: 20180711
  Serious: Yes (Other)
  Sender: FDA-Public Use
  Company Number: FR-TEVA-2018-FR-884551

PATIENT
  Age: 7 Year
  Sex: Female
  Weight: 37 kg

DRUGS (3)
  1. XENETIX 350 (350 MG D^IODE/ML), SOLUTION INJECTABLE [Suspect]
     Active Substance: IOBITRIDOL
     Indication: COMPUTERISED TOMOGRAM HEAD
     Route: 042
  2. CEFOTAXIME BASE [Suspect]
     Active Substance: CEFOTAXIME SODIUM
     Indication: ENCEPHALITIS
     Dosage: 50 MG /KG /6 H
     Route: 042
  3. ACICLOVIR [Suspect]
     Active Substance: ACYCLOVIR
     Indication: ENCEPHALITIS
     Route: 042

REACTIONS (1)
  - Acute kidney injury [Recovering/Resolving]
